FAERS Safety Report 8153964-7 (Version None)
Quarter: 2012Q1

REPORT INFORMATION
  Report Type: 
  Country: None (occurrence: None)
  Receive Date: 20120221
  Receipt Date: 20120221
  Transmission Date: 20120608
  Serious: Yes (Hospitalization, Other)
  Sender: FDA-Public Use
  Company Number: None

PATIENT
  Age: 61 Year
  Sex: Female
  Weight: 84 kg

DRUGS (17)
  1. DEXAMETHASONE [Concomitant]
     Route: 042
  2. FLUTICASONE PROPIONATE/SALMETEROL [Concomitant]
  3. TRAMADOL HCL [Concomitant]
  4. OMEPRAZOLE [Concomitant]
  5. IBUPROFEN [Concomitant]
  6. DIPHENOXYLATE HCL + ATROPINE SULFATE [Concomitant]
  7. MAGIC MOUTHWASH [Concomitant]
     Route: 048
  8. DOCETAXEL [Suspect]
     Indication: BREAST CANCER
     Dosage: 190 MG
     Route: 042
     Dates: start: 20110826, end: 20110826
  9. NEULASTA [Concomitant]
  10. DIPHENHYDRAMINE HCL [Concomitant]
     Route: 042
  11. MONTELUKAST [Concomitant]
  12. ALBUTEROL [Concomitant]
  13. OXYCODONE HCL [Concomitant]
  14. BUPROPION HCL [Concomitant]
  15. FAMOTIDINE [Concomitant]
     Route: 048
  16. PAROXETINE [Concomitant]
  17. PROCHLORPERAZINE [Concomitant]

REACTIONS (10)
  - SKIN TOXICITY [None]
  - BURNING SENSATION [None]
  - HYPOAESTHESIA [None]
  - RASH [None]
  - ACTIVITIES OF DAILY LIVING IMPAIRED [None]
  - PARAESTHESIA [None]
  - DRUG DOSE OMISSION [None]
  - OEDEMA PERIPHERAL [None]
  - ERYTHEMA [None]
  - FACIAL SPASM [None]
